FAERS Safety Report 7651264-2 (Version None)
Quarter: 2011Q3

REPORT INFORMATION
  Report Type: 
  Country: None (occurrence: None)
  Receive Date: 20110802
  Receipt Date: 20110729
  Transmission Date: 20111222
  Serious: Yes (Death)
  Sender: FDA-Public Use
  Company Number: ES-ASTRAZENECA-2011SE45567

PATIENT
  Age: 78 Year
  Sex: Female

DRUGS (6)
  1. CARBAMAZEPINE [Suspect]
     Indication: RESTLESS LEGS SYNDROME
  2. OMEPRAZOLE [Suspect]
     Route: 048
  3. CARBAMAZEPINE [Suspect]
     Indication: TREMOR
  4. CILOSTAZOL [Suspect]
  5. METILPREDNISOLONE [Concomitant]
  6. SULPIRIDE [Concomitant]

REACTIONS (2)
  - STEVENS-JOHNSON SYNDROME [None]
  - TOXIC EPIDERMAL NECROLYSIS [None]
